FAERS Safety Report 8517244-X (Version None)
Quarter: 2012Q3

REPORT INFORMATION
  Report Type: 
  Country: None (occurrence: None)
  Receive Date: 20120706
  Receipt Date: 20120621
  Transmission Date: 20120928
  Serious: Yes (Other)
  Sender: FDA-Public Use
  Company Number: DSU-2012-05233

PATIENT
  Age: 47 Year
  Sex: Male

DRUGS (1)
  1. OLMESARTAN MEDOXOMIL [Suspect]
     Indication: HYPERTENSION
     Dosage: PER ORAL
     Route: 048

REACTIONS (6)
  - WEIGHT DECREASED [None]
  - RENAL FAILURE ACUTE [None]
  - GASTROENTERITIS ESCHERICHIA COLI [None]
  - DEHYDRATION [None]
  - GASTRITIS [None]
  - HELICOBACTER TEST POSITIVE [None]
